FAERS Safety Report 9097676 (Version 2)
Quarter: 2013Q1

REPORT INFORMATION
  Report Type: Spontaneous
  Country: US (occurrence: US)
  Receive Date: 20130212
  Receipt Date: 20130325
  Transmission Date: 20140127
  Serious: Yes (Life-Threatening, Hospitalization)
  Sender: FDA-Public Use
  Company Number: US-BRISTOL-MYERS SQUIBB COMPANY-17343492

PATIENT
  Sex: Male

DRUGS (1)
  1. YERVOY [Suspect]
     Dosage: LAST DOSE:31DEC2012?29OCT12;918688?19NV12;918689?10DC12;918693+919024?31DC12;918693+920172

REACTIONS (5)
  - Mental status changes [Unknown]
  - Syncope [Unknown]
  - Hypotension [Unknown]
  - Sinusitis [Unknown]
  - Headache [Unknown]
